FAERS Safety Report 4558866-0 (Version None)
Quarter: 2005Q1

REPORT INFORMATION
  Report Type: 
  Country: None (occurrence: None)
  Receive Date: 20050121
  Receipt Date: 20041213
  Transmission Date: 20050727
  Serious: Yes (Disabling)
  Sender: FDA-Public Use
  Company Number: FR-MERCK-0412FRA00041

PATIENT
  Age: 54 Year
  Sex: Female

DRUGS (10)
  1. ZOCOR [Suspect]
     Indication: HYPERCHOLESTEROLAEMIA
     Route: 048
     Dates: start: 20040101, end: 20040201
  2. ZOCOR [Suspect]
     Route: 048
     Dates: start: 20040201, end: 20040925
  3. ZOCOR [Suspect]
     Route: 048
     Dates: start: 20041117, end: 20041217
  4. ZOCOR [Suspect]
     Indication: TRANSIENT ISCHAEMIC ATTACK
     Route: 048
     Dates: start: 20040101, end: 20040201
  5. ZOCOR [Suspect]
     Route: 048
     Dates: start: 20040201, end: 20040925
  6. ZOCOR [Suspect]
     Route: 048
     Dates: start: 20041117, end: 20041217
  7. CLOPIDOGREL BISULFATE [Concomitant]
     Indication: THROMBOSIS PROPHYLAXIS
     Route: 048
     Dates: start: 20031101
  8. CLOPIDOGREL BISULFATE [Concomitant]
     Indication: TRANSIENT ISCHAEMIC ATTACK
     Route: 048
     Dates: start: 20031101
  9. LEVOTHYROXINE SODIUM [Concomitant]
     Indication: AUTOIMMUNE THYROIDITIS
     Route: 048
  10. OMEPRAZOLE [Concomitant]
     Indication: PROPHYLAXIS AGAINST GASTROINTESTINAL ULCER
     Route: 048

REACTIONS (4)
  - DEPRESSION [None]
  - MYALGIA [None]
  - OSTEOARTHRITIS [None]
  - TRANSIENT ISCHAEMIC ATTACK [None]
